FAERS Safety Report 23778874 (Version 1)
Quarter: 2024Q2

REPORT INFORMATION
  Report Type: Spontaneous
  Country: AU (occurrence: AU)
  Receive Date: 20240424
  Receipt Date: 20240424
  Transmission Date: 20240716
  Serious: Yes (Other)
  Sender: FDA-Public Use
  Company Number: AU-LUNDBECK-DKLU3077091

PATIENT
  Age: 64 Year
  Sex: Female

DRUGS (2)
  1. VORTIOXETINE [Suspect]
     Active Substance: VORTIOXETINE
     Indication: Product used for unknown indication
     Dosage: 10 MILLIGRAM
     Route: 065
  2. ABILIFY [Suspect]
     Active Substance: ARIPIPRAZOLE
     Indication: Product used for unknown indication
     Dosage: 10 MILLIGRAM
     Route: 065

REACTIONS (1)
  - Neuroleptic malignant syndrome [Unknown]
